FAERS Safety Report 10885846 (Version 1)
Quarter: 2015Q1

REPORT INFORMATION
  Report Type: Spontaneous
  Country: US (occurrence: None)
  Receive Date: 20150227
  Receipt Date: 20150227
  Transmission Date: 20150721
  Serious: No
  Sender: FDA-Public Use
  Company Number: None

PATIENT
  Age: 56 Year
  Sex: Female
  Weight: 60.2 kg

DRUGS (1)
  1. CEFAZOLIN [Suspect]
     Active Substance: CEFAZOLIN
     Indication: HYPERTENSION
     Route: 042
     Dates: start: 20130927, end: 20130930

REACTIONS (1)
  - Rash [None]

NARRATIVE: CASE EVENT DATE: 20130927
